FAERS Safety Report 5062700-2 (Version None)
Quarter: 2006Q3

REPORT INFORMATION
  Report Type: 
  Country: None (occurrence: None)
  Receive Date: 20060703
  Receipt Date: 20051026
  Transmission Date: 20061208
  Serious: No
  Sender: FDA-Public Use
  Company Number: 2005S1010544

PATIENT
  Age: 30 Year
  Sex: Female
  Weight: 69.4003 kg

DRUGS (5)
  1. CLOZAPINE [Suspect]
     Indication: SCHIZOAFFECTIVE DISORDER
     Dosage: 200 MG; HS; ORAL
     Route: 048
     Dates: start: 20050601
  2. LORAZEPAM [Concomitant]
  3. VALPROATE SODIUM [Concomitant]
  4. DIPHENHYDRAMINE [Concomitant]
  5. HALOPERIDOL [Concomitant]

REACTIONS (1)
  - GRANULOCYTOPENIA [None]
